FAERS Safety Report 6554952-4 (Version None)
Quarter: 2010Q1

REPORT INFORMATION
  Report Type: 
  Country: None (occurrence: None)
  Receive Date: 20100126
  Receipt Date: 20100126
  Transmission Date: 20100710
  Serious: Yes (Hospitalization)
  Sender: FDA-Public Use
  Company Number: None

PATIENT
  Sex: Female
  Weight: 68 kg

DRUGS (1)
  1. TAXOL [Suspect]
     Dosage: 310 MG

REACTIONS (4)
  - ACUTE ABDOMEN [None]
  - COLITIS ISCHAEMIC [None]
  - NAUSEA [None]
  - VOMITING [None]
